FAERS Safety Report 5920394-5 (Version None)
Quarter: 2008Q4

REPORT INFORMATION
  Report Type: 
  Country: None (occurrence: None)
  Receive Date: 20081016
  Receipt Date: 20081006
  Transmission Date: 20090506
  Serious: Yes (Life-Threatening, Hospitalization, Disabling)
  Sender: FDA-Public Use
  Company Number: FR-AMGEN-UK196768

PATIENT
  Sex: Female

DRUGS (16)
  1. ROMIPLOSTIM [Suspect]
     Indication: IDIOPATHIC THROMBOCYTOPENIC PURPURA
     Route: 058
     Dates: start: 20060518, end: 20061005
  2. HEPARIN [Suspect]
     Route: 042
     Dates: start: 20060823, end: 20060831
  3. TARGOCID [Suspect]
     Route: 042
     Dates: start: 20060831
  4. BACTRIM [Suspect]
     Route: 048
     Dates: start: 20061004
  5. ROCEPHIN [Suspect]
     Route: 042
     Dates: start: 20070822
  6. VANCOMYCIN HYDROCHLORIDE [Suspect]
     Route: 042
     Dates: start: 20070822
  7. GENTAMYCIN SULFATE [Suspect]
     Route: 042
     Dates: start: 20060822
  8. INNOHEP [Concomitant]
     Dates: start: 20060901, end: 20061016
  9. ACETAMINOPHEN [Concomitant]
     Route: 048
     Dates: start: 20060924
  10. ZOLPIDEM [Concomitant]
     Dates: start: 20061004
  11. XANAX [Concomitant]
     Dates: start: 20061016
  12. LEDERFOLIN [Concomitant]
     Dates: start: 20061004
  13. ZOMIG [Concomitant]
     Route: 048
     Dates: start: 20061019
  14. TRAMADOL HCL [Concomitant]
     Route: 042
     Dates: start: 20060822, end: 20060830
  15. BETAMETHASONE [Concomitant]
     Route: 048
     Dates: start: 20060825, end: 20060827
  16. DESLORATADINE [Concomitant]
     Route: 048
     Dates: start: 20060825, end: 20060827

REACTIONS (3)
  - IDIOPATHIC THROMBOCYTOPENIC PURPURA [None]
  - THROMBOCYTOPENIA [None]
  - TRANSIENT ISCHAEMIC ATTACK [None]
